FAERS Safety Report 4672912-5 (Version None)
Quarter: 2005Q2

REPORT INFORMATION
  Report Type: 
  Country: None (occurrence: None)
  Receive Date: 20050524
  Receipt Date: 20050509
  Transmission Date: 20051028
  Serious: Yes (Life-Threatening, Hospitalization)
  Sender: FDA-Public Use
  Company Number: GXKR2005US01023

PATIENT
  Age: 72 Year
  Sex: Male

DRUGS (2)
  1. AZATHIOPRINE [Suspect]
     Indication: AUTOIMMUNE HEPATITIS
     Dosage: 50 MG QD ORAL
     Route: 048
  2. PREDNISONE [Suspect]
     Indication: AUTOIMMUNE HEPATITIS
     Dosage: 40 MG QD ORAL
     Route: 048

REACTIONS (8)
  - BACTERIAL SEPSIS [None]
  - CONFUSIONAL STATE [None]
  - CRYPTOCOCCOSIS [None]
  - ENTEROCOCCAL SEPSIS [None]
  - KLEBSIELLA SEPSIS [None]
  - LEUKOCYTOSIS [None]
  - RASH ERYTHEMATOUS [None]
  - SKIN ULCER [None]
